FAERS Safety Report 5239710-5 (Version None)
Quarter: 2007Q1

REPORT INFORMATION
  Report Type: 
  Country: None (occurrence: None)
  Receive Date: 20070216
  Receipt Date: 20070206
  Transmission Date: 20070707
  Serious: Yes (Other)
  Sender: FDA-Public Use
  Company Number: BR-ROCHE-481682

PATIENT
  Age: 36 Year
  Sex: Male
  Weight: 72 kg

DRUGS (5)
  1. RIVOTRIL [Suspect]
     Dosage: UNSPECIFIED AMOUNT
     Route: 048
     Dates: start: 20060915
  2. RIVOTRIL [Suspect]
     Route: 048
     Dates: start: 20070204, end: 20070204
  3. RIVOTRIL [Suspect]
     Route: 048
     Dates: start: 20070205, end: 20070205
  4. RIVOTRIL [Suspect]
     Dosage: UNSPECIFIED AMOUNT.
     Route: 048
     Dates: start: 20070206, end: 20070206
  5. RIVOTRIL [Suspect]
     Dosage: UNSPECIFED AMOUNT
     Route: 048

REACTIONS (6)
  - FEEDING DISORDER [None]
  - HYPERSOMNIA [None]
  - MARITAL PROBLEM [None]
  - ORAL INTAKE REDUCED [None]
  - SOMNOLENCE [None]
  - SUICIDE ATTEMPT [None]
